FAERS Safety Report 6934960-1 (Version None)
Quarter: 2010Q3

REPORT INFORMATION
  Report Type: 
  Country: None (occurrence: None)
  Receive Date: 20100821
  Receipt Date: 20100813
  Transmission Date: 20110219
  Serious: Yes (Other)
  Sender: FDA-Public Use
  Company Number: CHPA2010US12429

PATIENT
  Sex: Male
  Weight: 22.676 kg

DRUGS (2)
  1. TRIAMINIC DAY TIME COLD + COUGH (NCH) [Suspect]
     Indication: NASOPHARYNGITIS
     Dosage: 2 TSP, UNK
     Route: 048
     Dates: start: 20100801, end: 20100801
  2. TRIAMINIC DAY TIME COLD + COUGH (NCH) [Suspect]
     Indication: COUGH

REACTIONS (5)
  - CYANOSIS [None]
  - GRAND MAL CONVULSION [None]
  - LETHARGY [None]
  - MALAISE [None]
  - VOMITING [None]
